FAERS Safety Report 4661611-1 (Version None)
Quarter: 2005Q2

REPORT INFORMATION
  Report Type: 
  Country: None (occurrence: None)
  Receive Date: 20050513
  Receipt Date: 20050421
  Transmission Date: 20051028
  Serious: Yes (Disabling)
  Sender: FDA-Public Use
  Company Number: 200511399FR

PATIENT
  Age: 50 Year
  Sex: Male

DRUGS (2)
  1. KETEK [Suspect]
     Indication: RESPIRATORY TRACT INFECTION
     Route: 048
     Dates: start: 20050101
  2. SERUMLIPIDREDUCING AGENTS [Concomitant]
     Indication: HYPERLIPIDAEMIA

REACTIONS (2)
  - AGEUSIA [None]
  - ANOSMIA [None]
